FAERS Safety Report 21896118 (Version 2)
Quarter: 2023Q1

REPORT INFORMATION
  Report Type: Other
  Country: GB (occurrence: GB)
  Receive Date: 20230123
  Receipt Date: 20230202
  Transmission Date: 20230417
  Serious: Yes (Other)
  Sender: FDA-Public Use
  Company Number: None

PATIENT
  Age: 69 Year
  Sex: Male

DRUGS (1)
  1. SERTRALINE [Suspect]
     Active Substance: SERTRALINE HYDROCHLORIDE
     Indication: Tremor
     Dosage: 50 MG, QD
     Route: 065
     Dates: start: 20221001

REACTIONS (2)
  - Tremor [Unknown]
  - Tongue movement disturbance [Unknown]
